FAERS Safety Report 8560467-4 (Version None)
Quarter: 2012Q3

REPORT INFORMATION
  Report Type: 
  Country: None (occurrence: None)
  Receive Date: 20120802
  Receipt Date: 20110502
  Transmission Date: 20120928
  Serious: Yes (Hospitalization, Other)
  Sender: FDA-Public Use
  Company Number: US-009507513-2010SP009187

PATIENT

DRUGS (7)
  1. NUVARING [Suspect]
     Indication: CONTRACEPTION
     Dosage: 1 DF, Q3W
     Route: 067
     Dates: start: 20080715, end: 20090701
  2. KETOROLAC TROMETHAMINE [Concomitant]
     Indication: PRODUCT USED FOR UNKNOWN INDICATION
     Dosage: 10 MG, QID
     Route: 048
     Dates: start: 20081229
  3. ALUMINUM HYDROXIDE (+) MAGNESIUM CARBONATE [Concomitant]
     Indication: GASTROOESOPHAGEAL REFLUX DISEASE
     Route: 048
     Dates: start: 20070628
  4. AZITHROMYCIN [Concomitant]
     Indication: PRODUCT USED FOR UNKNOWN INDICATION
     Dosage: 1000 MG, ONCE
     Route: 048
     Dates: start: 20090108, end: 20090108
  5. FLUCONAZOLE [Concomitant]
     Indication: PRODUCT USED FOR UNKNOWN INDICATION
     Dosage: 150 MG, ONCE
     Route: 048
     Dates: start: 20090108, end: 20090108
  6. FLUCONAZOLE [Concomitant]
     Dosage: 150 MG, ONCE
     Route: 048
     Dates: start: 20090204, end: 20090204
  7. CLOBETASOL PROPIONATE [Concomitant]
     Indication: PRODUCT USED FOR UNKNOWN INDICATION
     Dosage: BID X 2 WEEKS, THEN QD X 8 WEEKS
     Route: 061
     Dates: start: 20090206

REACTIONS (20)
  - ANXIETY [None]
  - RHINITIS [None]
  - PATELLOFEMORAL PAIN SYNDROME [None]
  - PHARYNGITIS STREPTOCOCCAL [None]
  - TOOTH INFECTION [None]
  - MIGRAINE [None]
  - VULVOVAGINAL MYCOTIC INFECTION [None]
  - MUSCLE TIGHTNESS [None]
  - NASOPHARYNGITIS [None]
  - URINARY TRACT INFECTION [None]
  - CEREBRAL HAEMORRHAGE [None]
  - CHLAMYDIAL INFECTION [None]
  - VIRAL UPPER RESPIRATORY TRACT INFECTION [None]
  - PAIN [None]
  - CONVULSION [None]
  - SYSTOLIC HYPERTENSION [None]
  - VULVOVAGINITIS [None]
  - HEADACHE [None]
  - CEREBRAL THROMBOSIS [None]
  - DEPRESSION [None]
